FAERS Safety Report 15704791 (Version 2)
Quarter: 2018Q4

REPORT INFORMATION
  Report Type: Spontaneous
  Country: US (occurrence: US)
  Receive Date: 20181210
  Receipt Date: 20181220
  Transmission Date: 20190205
  Serious: No
  Sender: FDA-Public Use
  Company Number: US-SANOFI-AVENTIS-2011SA036572

PATIENT
  Age: 78 Year
  Sex: Female

DRUGS (3)
  1. LANTUS [Suspect]
     Active Substance: INSULIN GLARGINE
     Dosage: 18 U
  2. LANTUS [Suspect]
     Active Substance: INSULIN GLARGINE
     Indication: TYPE 2 DIABETES MELLITUS
     Dosage: 11 DF,QD
     Route: 058
  3. LANTUS [Suspect]
     Active Substance: INSULIN GLARGINE
     Dosage: 20 DF,QD
     Route: 058

REACTIONS (4)
  - Blood glucose increased [Not Recovered/Not Resolved]
  - Feeling abnormal [Unknown]
  - Inappropriate schedule of product administration [Unknown]
  - Product complaint [Unknown]

NARRATIVE: CASE EVENT DATE: 201012
